FAERS Safety Report 16243483 (Version 1)
Quarter: 2019Q2

REPORT INFORMATION
  Report Type: Report from Study
  Country: US (occurrence: US)
  Receive Date: 20190426
  Receipt Date: 20190426
  Transmission Date: 20190711
  Serious: Yes (Death, Hospitalization, Other)
  Sender: FDA-Public Use
  Company Number: US-SA-2018SA112422

PATIENT
  Age: 53 Year
  Sex: Female
  Weight: 205 kg

DRUGS (6)
  1. VALACICLOVIR [Concomitant]
     Active Substance: VALACYCLOVIR HYDROCHLORIDE
     Indication: PROPHYLAXIS
     Dosage: 500 MG,UNK
     Route: 065
     Dates: start: 20180109
  2. LEMTRADA [Suspect]
     Active Substance: ALEMTUZUMAB
     Indication: MULTIPLE SCLEROSIS
     Dosage: 12 MG,QD
     Route: 041
     Dates: start: 20180327, end: 20180329
  3. ELEVA [Concomitant]
     Active Substance: SERTRALINE HYDROCHLORIDE
     Indication: DEPRESSION
  4. LEMTRADA [Suspect]
     Active Substance: ALEMTUZUMAB
     Dosage: 12 MG,QD
     Route: 041
     Dates: start: 20170116, end: 20170120
  5. ZOLPIDEM [Concomitant]
     Active Substance: ZOLPIDEM\ZOLPIDEM TARTRATE
     Indication: INSOMNIA
     Dosage: 10 MG,UNK
     Route: 065
     Dates: start: 20011015
  6. PRAMIPEXOLE. [Concomitant]
     Active Substance: PRAMIPEXOLE
     Indication: ILL-DEFINED DISORDER
     Dosage: 1 MG,UNK
     Route: 065
     Dates: start: 20180315

REACTIONS (23)
  - Septic shock [Fatal]
  - Pneumonia [Not Recovered/Not Resolved]
  - Rhinorrhoea [Not Recovered/Not Resolved]
  - Syncope [Fatal]
  - White blood cell count decreased [Not Recovered/Not Resolved]
  - Oral candidiasis [Recovered/Resolved]
  - Respiratory failure [Fatal]
  - Haemoglobin decreased [Fatal]
  - Viral infection [Unknown]
  - Acute kidney injury [Fatal]
  - Basedow^s disease [Fatal]
  - Feeling cold [Not Recovered/Not Resolved]
  - Fall [Fatal]
  - Restless legs syndrome [Fatal]
  - Urinary tract infection [Fatal]
  - Cough [Not Recovered/Not Resolved]
  - Vomiting [Fatal]
  - Haemoptysis [Not Recovered/Not Resolved]
  - Hypothyroidism [Fatal]
  - Pyrexia [Not Recovered/Not Resolved]
  - Oedema [Fatal]
  - Dyspnoea [Not Recovered/Not Resolved]
  - Dysgeusia [Unknown]

NARRATIVE: CASE EVENT DATE: 20180331
